FAERS Safety Report 8110881-6 (Version None)
Quarter: 2012Q1

REPORT INFORMATION
  Report Type: 
  Country: None (occurrence: None)
  Receive Date: 20120203
  Receipt Date: 20120130
  Transmission Date: 20120608
  Serious: No
  Sender: FDA-Public Use
  Company Number: US-JNJFOC-20111201400

PATIENT
  Sex: Male
  Weight: 78.93 kg

DRUGS (2)
  1. INVEGA SUSTENNA [Suspect]
     Indication: PRODUCT USED FOR UNKNOWN INDICATION
     Route: 030
  2. INVEGA [Suspect]
     Indication: PSYCHOTIC DISORDER
     Route: 048
     Dates: start: 20110901, end: 20111128

REACTIONS (2)
  - TREATMENT NONCOMPLIANCE [None]
  - EXTRAPYRAMIDAL DISORDER [None]
